FAERS Safety Report 8132170-6 (Version None)
Quarter: 2012Q1

REPORT INFORMATION
  Report Type: 
  Country: None (occurrence: None)
  Receive Date: 20120208
  Receipt Date: 20120124
  Transmission Date: 20120608
  Serious: Yes (Death)
  Sender: FDA-Public Use
  Company Number: 2012BN000038

PATIENT
  Age: 61 Year
  Sex: Male

DRUGS (13)
  1. MELPHALAN HYDROCHLORIDE [Suspect]
     Indication: MULTIPLE MYELOMA
  2. NEUPOGEN [Suspect]
     Indication: HAEMATOPOIETIC STEM CELL MOBILISATION
     Dosage: 16 UG/KG;QD
  3. CARMUSTINE [Concomitant]
  4. ADRIAMYCIN PFS [Concomitant]
  5. DEXAMETHASONE [Concomitant]
  6. THALIDOMIDE [Concomitant]
  7. MELPHALAN HYDROCHLORIDE [Concomitant]
  8. PREDNISONE [Concomitant]
  9. CYCLOPHOSPHAMIDE [Concomitant]
  10. INTERFERON [Concomitant]
  11. BISPHOSPHONATES [Concomitant]
  12. NITROGLYCERIN [Concomitant]
  13. VINCRISTINE [Concomitant]

REACTIONS (11)
  - ARTERIOSCLEROSIS [None]
  - CARDIAC ARREST [None]
  - ACUTE MYOCARDIAL INFARCTION [None]
  - AMYLOIDOSIS [None]
  - PULSELESS ELECTRICAL ACTIVITY [None]
  - CARDIAC AMYLOIDOSIS [None]
  - EROSIVE OESOPHAGITIS [None]
  - ARTERIOSCLEROSIS CORONARY ARTERY [None]
  - GASTROINTESTINAL AMYLOIDOSIS [None]
  - HYPOTENSION [None]
  - RENAL AMYLOIDOSIS [None]
